FAERS Safety Report 4746738-8 (Version None)
Quarter: 2005Q3

REPORT INFORMATION
  Report Type: 
  Country: None (occurrence: None)
  Receive Date: 20050817
  Receipt Date: 20050812
  Transmission Date: 20060218
  Serious: Yes (Hospitalization)
  Sender: FDA-Public Use
  Company Number: NO-GLAXOSMITHKLINE-B0390704A

PATIENT
  Age: 81 Year
  Sex: Female

DRUGS (8)
  1. AVANDIA [Suspect]
     Indication: DIABETES MELLITUS
     Route: 048
     Dates: start: 20050708, end: 20050719
  2. COAPROVEL [Concomitant]
     Indication: HYPERTENSION
     Dosage: 300MG PER DAY
     Route: 048
     Dates: start: 20020101
  3. KREDEX [Concomitant]
     Indication: HYPERTENSION
     Dosage: 12.5MG PER DAY
     Route: 048
     Dates: start: 20030101
  4. PHYSIOTENS [Concomitant]
     Indication: HYPERTENSION
     Dosage: .4MG PER DAY
     Route: 048
     Dates: start: 20040101
  5. AMARYL [Concomitant]
     Indication: DIABETES MELLITUS
     Route: 048
     Dates: start: 20050101
  6. GLUCOPHAGE [Concomitant]
     Route: 048
     Dates: start: 19960101
  7. BUMETANIDE [Concomitant]
     Indication: HYPERTENSION
     Dosage: 1G PER DAY
     Route: 048
     Dates: start: 19950101
  8. ZOCOR [Concomitant]
     Dosage: 20MG PER DAY
     Route: 048
     Dates: start: 19970101

REACTIONS (1)
  - BLOOD CREATININE INCREASED [None]
